FAERS Safety Report 16202867 (Version 1)
Quarter: 2019Q2

REPORT INFORMATION
  Report Type: Spontaneous
  Country: US (occurrence: US)
  Receive Date: 20190416
  Receipt Date: 20190416
  Transmission Date: 20190711
  Serious: Yes (Other)
  Sender: FDA-Public Use
  Company Number: US-ROCHE-2304322

PATIENT
  Sex: Female

DRUGS (1)
  1. OCREVUS [Suspect]
     Active Substance: OCRELIZUMAB
     Indication: MULTIPLE SCLEROSIS
     Dosage: RECENT DOSE: 02/MAR/2019
     Route: 065
     Dates: start: 201809

REACTIONS (1)
  - Hepatitis C [Not Recovered/Not Resolved]
